APPROVED DRUG PRODUCT: ALLEGRA
Active Ingredient: FEXOFENADINE HYDROCHLORIDE
Strength: 60MG **Federal Register determination that product was not discontinued or withdrawn for safety or effectiveness reasons**
Dosage Form/Route: CAPSULE;ORAL
Application: N020625 | Product #001
Applicant: CHATTEM INC DBA SANOFI CONSUMER HEALTHCARE
Approved: Jul 25, 1996 | RLD: No | RS: No | Type: DISCN